FAERS Safety Report 19265090 (Version 1)
Quarter: 2021Q2

REPORT INFORMATION
  Report Type: Report from Study
  Country: CO (occurrence: CO)
  Receive Date: 20210517
  Receipt Date: 20210517
  Transmission Date: 20210717
  Serious: Yes (Death)
  Sender: FDA-Public Use
  Company Number: CO-ASTRAZENECA-2021A404380

PATIENT
  Age: 15982 Day
  Sex: Male

DRUGS (1)
  1. SYMBICORT [Suspect]
     Active Substance: BUDESONIDE\FORMOTEROL FUMARATE DIHYDRATE
     Indication: ASTHMA
     Dosage: 160 MCG / 4.5 MCG, EVERY 12 HOURS
     Route: 055
     Dates: start: 20180704

REACTIONS (1)
  - Death [Fatal]

NARRATIVE: CASE EVENT DATE: 20201118
